FAERS Safety Report 5748238-5 (Version None)
Quarter: 2008Q2

REPORT INFORMATION
  Report Type: 
  Country: None (occurrence: None)
  Receive Date: 20080523
  Receipt Date: 20080514
  Transmission Date: 20081010
  Serious: Yes (Other)
  Sender: FDA-Public Use
  Company Number: AU-PFIZER INC-2006149823

PATIENT
  Sex: Female
  Weight: 70 kg

DRUGS (7)
  1. LYRICA [Suspect]
     Indication: PAIN
  2. LYRICA [Suspect]
     Indication: PAIN IN EXTREMITY
  3. LYRICA [Suspect]
     Indication: EPILEPSY
  4. LYRICA [Suspect]
     Indication: BURNING SENSATION
  5. TEGRETOL [Suspect]
  6. SINEMET [Concomitant]
  7. COLECALCIFEROL [Concomitant]

REACTIONS (5)
  - AMNESIA [None]
  - BLINDNESS [None]
  - DEAFNESS [None]
  - MUSCLE CONTRACTIONS INVOLUNTARY [None]
  - VISION BLURRED [None]
